FAERS Safety Report 10216611 (Version 1)
Quarter: 2014Q2

REPORT INFORMATION
  Report Type: Spontaneous
  Country: US (occurrence: US)
  Receive Date: 20140604
  Receipt Date: 20140604
  Transmission Date: 20141212
  Serious: No
  Sender: FDA-Public Use
  Company Number: US-PFIZER INC-2014153281

PATIENT
  Sex: Male

DRUGS (1)
  1. LYRICA [Suspect]
     Dosage: 50 MG, UNK
     Dates: start: 20140530

REACTIONS (3)
  - Euphoric mood [Unknown]
  - Feeling abnormal [Unknown]
  - Impaired work ability [Unknown]
